FAERS Safety Report 21896380 (Version 2)
Quarter: 2023Q1

REPORT INFORMATION
  Report Type: Spontaneous
  Country: JP (occurrence: JP)
  Receive Date: 20230123
  Receipt Date: 20230126
  Transmission Date: 20230418
  Serious: Yes (Hospitalization, Other)
  Sender: FDA-Public Use
  Company Number: JP-ONO-2023JP001342

PATIENT
  Age: 8 Decade
  Sex: Female

DRUGS (3)
  1. OPDIVO [Suspect]
     Active Substance: NIVOLUMAB
     Indication: Gastric cancer
     Dosage: 360 MG, 5 TIMES/3 WEEKS
     Route: 041
  2. OXALIPLATIN [Concomitant]
     Active Substance: OXALIPLATIN
     Indication: Product used for unknown indication
     Dosage: 100 MG/M2, 5 TIMES/3 WEEKS
     Route: 041
  3. TS-1 [Concomitant]
     Active Substance: GIMERACIL\OTERACIL\TEGAFUR
     Indication: Product used for unknown indication
     Dosage: ORAL DRUG UNSPECIFIED FORM
     Route: 048

REACTIONS (3)
  - Fulminant type 1 diabetes mellitus [Not Recovered/Not Resolved]
  - Diabetic ketoacidosis [Unknown]
  - Inappropriate schedule of product administration [Unknown]

NARRATIVE: CASE EVENT DATE: 20230113
